FAERS Safety Report 8392054-5 (Version None)
Quarter: 2012Q2

REPORT INFORMATION
  Report Type: 
  Country: None (occurrence: None)
  Receive Date: 20120529
  Receipt Date: 20120528
  Transmission Date: 20120825
  Serious: Yes (Death, Hospitalization, Other)
  Sender: FDA-Public Use
  Company Number: JP-ABBOTT-12P-087-0895947-00

PATIENT
  Sex: Female
  Weight: 56.5 kg

DRUGS (12)
  1. CANDESARTAN CILEXETIL [Concomitant]
     Indication: HYPERTENSION
     Route: 048
     Dates: start: 20080410, end: 20111212
  2. ETIZOLAM [Concomitant]
     Indication: RHEUMATOID ARTHRITIS
     Route: 048
     Dates: start: 20080410, end: 20111212
  3. SITAGLIPTIN PHOSPHATE HYDRATE [Concomitant]
     Indication: DIABETES MELLITUS
     Route: 048
     Dates: start: 20100803, end: 20111212
  4. CILOSTAZOL [Concomitant]
     Indication: PERIPHERAL ARTERIAL OCCLUSIVE DISEASE
     Route: 048
     Dates: start: 20080410, end: 20111212
  5. MECOBALAMIN [Concomitant]
     Indication: PERIPHERAL ARTERIAL OCCLUSIVE DISEASE
     Route: 048
     Dates: start: 20080828, end: 20111212
  6. REBAMIPIDE [Concomitant]
     Indication: GASTRITIS PROPHYLAXIS
     Route: 048
     Dates: start: 20080214, end: 20111212
  7. HUMIRA [Suspect]
     Indication: RHEUMATOID ARTHRITIS
     Route: 058
     Dates: start: 20090622, end: 20111108
  8. LOXOPROFEN SODIUM HYDRATE [Concomitant]
     Indication: RHEUMATOID ARTHRITIS
     Route: 048
     Dates: start: 20071025, end: 20111212
  9. PREDNISOLONE [Concomitant]
     Indication: RHEUMATOID ARTHRITIS
     Route: 048
     Dates: start: 20071122, end: 20111212
  10. VERAPAMIL HYDROCHLORIDE [Concomitant]
     Indication: ARRHYTHMIA
     Route: 048
     Dates: start: 20080410, end: 20111212
  11. FUROSEMIDE [Concomitant]
     Indication: ARRHYTHMIA
     Route: 048
     Dates: start: 20080410, end: 20111212
  12. FERROUS FUMARATE [Concomitant]
     Indication: ANAEMIA
     Route: 048
     Dates: start: 20111011, end: 20111212

REACTIONS (10)
  - SEPSIS [None]
  - CARDIAC ARREST [None]
  - STAPHYLOCOCCAL BACTERAEMIA [None]
  - HYPOKINESIA [None]
  - CONTUSION [None]
  - FALL [None]
  - CANDIDURIA [None]
  - URINARY TRACT INFECTION [None]
  - DISSEMINATED INTRAVASCULAR COAGULATION [None]
  - PAIN [None]
